FAERS Safety Report 18015786 (Version 1)
Quarter: 2020Q3

REPORT INFORMATION
  Report Type: Spontaneous
  Country: IT (occurrence: IT)
  Receive Date: 20200713
  Receipt Date: 20200713
  Transmission Date: 20201103
  Serious: Yes (Other)
  Sender: FDA-Public Use
  Company Number: IT-MYLANLABS-2020M1063249

PATIENT
  Age: 73 Year
  Sex: Female

DRUGS (16)
  1. DOCETAXEL. [Suspect]
     Active Substance: DOCETAXEL
     Indication: BREAST NEOPLASM
     Dosage: 148.8 MILLIGRAM, CYCLE
     Dates: start: 20110714, end: 20110825
  2. PACLITAXEL. [Suspect]
     Active Substance: PACLITAXEL
     Indication: BREAST NEOPLASM
     Dosage: 117 MILLIGRAM, CYCLE
     Dates: start: 20190823, end: 20200117
  3. PERTUZUMAB. [Suspect]
     Active Substance: PERTUZUMAB
     Indication: BREAST NEOPLASM
     Dosage: 840 MILLIGRAM, CYCLE
     Dates: start: 20190823, end: 20200214
  4. APREPITANT. [Concomitant]
     Active Substance: APREPITANT
     Dosage: UNK
  5. EPIRUBICIN [Suspect]
     Active Substance: EPIRUBICIN
     Indication: BREAST NEOPLASM
     Dosage: 145 MILLIGRAM, CYCLE
     Dates: start: 20110505, end: 20110823
  6. FLUOROURACIL. [Suspect]
     Active Substance: FLUOROURACIL
     Indication: BREAST NEOPLASM
     Dosage: 725 MILLIGRAM, CYCLE
     Dates: start: 20110505, end: 20110623
  7. LORATADINE. [Concomitant]
     Active Substance: LORATADINE
     Dosage: UNK
  8. DEXAMETHASONE. [Concomitant]
     Active Substance: DEXAMETHASONE
     Dosage: UNK
  9. GRANISETRON [Concomitant]
     Active Substance: GRANISETRON
     Dosage: UNK
  10. TROPISETRON [Concomitant]
     Active Substance: TROPISETRON
     Dosage: UNK
  11. TRASTUZUMAB. [Suspect]
     Active Substance: TRASTUZUMAB
     Indication: BREAST NEOPLASM
     Dosage: 720 MILLIGRAM, CYCLE
     Dates: start: 20110915, end: 20200214
  12. METHYLPREDNISOLONE. [Concomitant]
     Active Substance: METHYLPREDNISOLONE
     Dosage: UNK
  13. CHLORPHENAMINE [Concomitant]
     Active Substance: CHLORPHENIRAMINE MALEATE
     Dosage: UNK
  14. PALONOSETRON HYDROCHLORIDE. [Concomitant]
     Active Substance: PALONOSETRON HYDROCHLORIDE
     Dosage: UNK
  15. CYCLOPHOSPHAMIDE. [Suspect]
     Active Substance: CYCLOPHOSPHAMIDE
     Indication: BREAST NEOPLASM
     Dosage: 725 MILLIGRAM, CYCLE
     Dates: start: 20110505, end: 20110623
  16. RANITIDINE. [Concomitant]
     Active Substance: RANITIDINE
     Dosage: UNK

REACTIONS (1)
  - Ejection fraction decreased [Unknown]

NARRATIVE: CASE EVENT DATE: 20200220
